FAERS Safety Report 25819184 (Version 2)
Quarter: 2025Q4

REPORT INFORMATION
  Report Type: Spontaneous
  Country: US (occurrence: US)
  Receive Date: 20250918
  Receipt Date: 20251210
  Transmission Date: 20260118
  Serious: No
  Sender: SANOFI AVENTIS
  Company Number: US-SA-2025SA278757

PATIENT
  Age: 78 Year
  Sex: Female

DRUGS (1)
  1. DUPIXENT [Suspect]
     Active Substance: DUPILUMAB
     Indication: Chronic obstructive pulmonary disease
     Dosage: 300 MG, QOW
     Route: 058
     Dates: start: 20250729

REACTIONS (5)
  - Productive cough [Unknown]
  - Therapeutic response shortened [Unknown]
  - Secretion discharge [Unknown]
  - Condition aggravated [Unknown]
  - Wheezing [Recovering/Resolving]

NARRATIVE: CASE EVENT DATE: 20250101
